FAERS Safety Report 21779367 (Version 7)
Quarter: 2024Q1

REPORT INFORMATION
  Report Type: Report from Study
  Country: US (occurrence: US)
  Receive Date: 20221226
  Receipt Date: 20240228
  Transmission Date: 20240410
  Serious: Yes (Hospitalization, Other)
  Sender: FDA-Public Use
  Company Number: US-002147023-NVSC2022US297376

PATIENT
  Sex: Female

DRUGS (3)
  1. MAYZENT [Suspect]
     Active Substance: SIPONIMOD
     Indication: Product used for unknown indication
     Dosage: 2 MG
     Route: 048
  2. MAYZENT [Suspect]
     Active Substance: SIPONIMOD
     Dosage: UNK
     Route: 065
  3. GLATOPA [Suspect]
     Active Substance: GLATIRAMER ACETATE
     Indication: Product used for unknown indication
     Dosage: UNK
     Route: 065

REACTIONS (13)
  - Myocardial infarction [Unknown]
  - Accident [Unknown]
  - Diabetes mellitus [Unknown]
  - Deafness [Unknown]
  - Craniofacial fracture [Unknown]
  - Aortic valve incompetence [Unknown]
  - Diabetic ketoacidosis [Unknown]
  - Amnesia [Unknown]
  - Eye contusion [Unknown]
  - Swelling face [Unknown]
  - Migraine [Unknown]
  - Blood pressure increased [Unknown]
  - Blood cholesterol increased [Unknown]
